FAERS Safety Report 4499360-5 (Version None)
Quarter: 2004Q4

REPORT INFORMATION
  Report Type: 
  Country: None (occurrence: None)
  Receive Date: 20041111
  Receipt Date: 20041011
  Transmission Date: 20050328
  Serious: Yes (Death)
  Sender: FDA-Public Use
  Company Number: GB-MERCK-0410GBR00109

PATIENT
  Age: 76 Year
  Sex: Female

DRUGS (2)
  1. VIOXX [Suspect]
     Route: 048
     Dates: end: 20041004
  2. CELECOXIB [Suspect]
     Route: 065
     Dates: end: 20041008

REACTIONS (4)
  - CORONARY ARTERY THROMBOSIS [None]
  - MYOCARDIAL INFARCTION [None]
  - PERICARDIAL DISEASE [None]
  - PERICARDIAL HAEMORRHAGE [None]
